FAERS Safety Report 9815694 (Version 2)
Quarter: 2014Q1

REPORT INFORMATION
  Report Type: Spontaneous
  Country: FR (occurrence: FR)
  Receive Date: 20140114
  Receipt Date: 20140123
  Transmission Date: 20141002
  Serious: Yes (Hospitalization)
  Sender: FDA-Public Use
  Company Number: FR-PFIZER INC-2014005734

PATIENT
  Age: 32 Year
  Sex: Female

DRUGS (3)
  1. CYTOTEC [Suspect]
     Indication: ABORTION INDUCED
     Dosage: UNK
     Route: 048
     Dates: start: 20130721
  2. AUGMENTIN [Suspect]
     Indication: ENDOMETRITIS
     Dosage: 1 G, 3X/DAY
     Route: 042
     Dates: start: 20130728, end: 20130729
  3. OFLOCET [Suspect]
     Indication: ENDOMETRITIS
     Dosage: 400 MG, 2X/DAY
     Route: 048
     Dates: start: 20130728, end: 20130729

REACTIONS (3)
  - Bicytopenia [Recovered/Resolved]
  - Platelet count decreased [Recovered/Resolved]
  - Off label use [Unknown]
